FAERS Safety Report 9163843 (Version 1)
Quarter: 2013Q1

REPORT INFORMATION
  Report Type: Spontaneous
  Country: US (occurrence: US)
  Receive Date: 20130314
  Receipt Date: 20130314
  Transmission Date: 20140127
  Serious: Yes (Hospitalization)
  Sender: FDA-Public Use
  Company Number: US-GILEAD-2013-0068870

PATIENT
  Age: 66 Year
  Sex: Female

DRUGS (2)
  1. LETAIRIS [Suspect]
     Indication: PULMONARY ARTERIAL HYPERTENSION
     Dosage: 5 MG, UNK
     Dates: start: 20121226, end: 20130123
  2. LETAIRIS [Suspect]
     Indication: COR PULMONALE

REACTIONS (3)
  - Cellulitis [Recovered/Resolved]
  - Fluid overload [Recovered/Resolved]
  - Oedema [Unknown]
